FAERS Safety Report 13696373 (Version 1)
Quarter: 2017Q2

REPORT INFORMATION
  Report Type: Spontaneous
  Country: US (occurrence: US)
  Receive Date: 20170627
  Receipt Date: 20170627
  Transmission Date: 20170830
  Serious: Yes (Other)
  Sender: FDA-Public Use
  Company Number: None

PATIENT
  Age: 72 Year
  Sex: Female
  Weight: 90 kg

DRUGS (6)
  1. DILTIAZEM CD [Concomitant]
     Active Substance: DILTIAZEM
  2. LOSARTAN POTASSIUM-HCTZ [Concomitant]
     Active Substance: HYDROCHLOROTHIAZIDE\LOSARTAN POTASSIUM
  3. ANASTROZOLE. [Concomitant]
     Active Substance: ANASTROZOLE
  4. AFINITOR [Suspect]
     Active Substance: EVEROLIMUS
     Dosage: ?          OTHER DOSE:MG;?
     Route: 048
     Dates: start: 20170222, end: 20170627
  5. EXEMESTANE. [Concomitant]
     Active Substance: EXEMESTANE
  6. ZYRTEC [Concomitant]
     Active Substance: CETIRIZINE HYDROCHLORIDE

REACTIONS (3)
  - Dyspnoea [None]
  - Anaemia [None]
  - Fatigue [None]

NARRATIVE: CASE EVENT DATE: 20170527
